FAERS Safety Report 5187525-9 (Version None)
Quarter: 2006Q4

REPORT INFORMATION
  Report Type: 
  Country: None (occurrence: None)
  Receive Date: 20061220
  Receipt Date: 20060227
  Transmission Date: 20070319
  Serious: No
  Sender: FDA-Public Use
  Company Number: US-AMGEN-US170409

PATIENT
  Sex: Female

DRUGS (3)
  1. ENBREL [Suspect]
     Indication: PSORIASIS
     Route: 065
     Dates: start: 20050201, end: 20060219
  2. ZOLOFT [Concomitant]
     Route: 065
     Dates: start: 20060206
  3. TYLENOL [Concomitant]
     Route: 065
     Dates: start: 20050301

REACTIONS (3)
  - ACCIDENTAL NEEDLE STICK [None]
  - INJECTION SITE SWELLING [None]
  - VISUAL DISTURBANCE [None]
